FAERS Safety Report 5473438-1 (Version None)
Quarter: 2007Q3

REPORT INFORMATION
  Report Type: 
  Country: None (occurrence: None)
  Receive Date: 20070828
  Receipt Date: 20070607
  Transmission Date: 20080115
  Serious: Yes (Hospitalization, Other)
  Sender: FDA-Public Use
  Company Number: PHEH2007US08452

PATIENT
  Age: 83 Year
  Sex: Female

DRUGS (1)
  1. FAMVIR [Suspect]
     Indication: HERPES ZOSTER
     Dosage: 500 MG, TID, ORAL
     Route: 048
     Dates: start: 20070527

REACTIONS (6)
  - BLOOD CREATININE INCREASED [None]
  - BLOOD UREA INCREASED [None]
  - DISORIENTATION [None]
  - LETHARGY [None]
  - RASH GENERALISED [None]
  - RENAL FAILURE ACUTE [None]
